FAERS Safety Report 20835020 (Version 7)
Quarter: 2023Q1

REPORT INFORMATION
  Report Type: Spontaneous
  Country: US (occurrence: US)
  Receive Date: 20220516
  Receipt Date: 20230203
  Transmission Date: 20230417
  Serious: Yes (Other)
  Sender: FDA-Public Use
  Company Number: US-PFIZER INC-202200654725

PATIENT
  Age: 49 Year
  Sex: Female

DRUGS (3)
  1. IBRANCE [Suspect]
     Active Substance: PALBOCICLIB
     Dosage: CYCLIC
     Dates: start: 20220429
  2. IBRANCE [Suspect]
     Active Substance: PALBOCICLIB
     Dosage: CYCLE FOR 14 DAYS ON AND 7 DAYS OFF
  3. IBRANCE [Suspect]
     Active Substance: PALBOCICLIB
     Dosage: TWO WEEKS ON AND TWO WEEKS OFF (TAB 100MG)

REACTIONS (10)
  - Neutropenia [Unknown]
  - Pain [Unknown]
  - Nausea [Unknown]
  - Fatigue [Unknown]
  - White blood cell count decreased [Unknown]
  - Abdominal pain [Unknown]
  - Abdominal discomfort [Unknown]
  - Diarrhoea [Unknown]
  - Myalgia [Unknown]
  - Product dose omission issue [Unknown]
